FAERS Safety Report 4874525-9 (Version None)
Quarter: 2006Q1

REPORT INFORMATION
  Report Type: 
  Country: None (occurrence: None)
  Receive Date: 20060103
  Receipt Date: 20060103
  Transmission Date: 20060701
  Serious: Yes (Hospitalization)
  Sender: FDA-Public Use
  Company Number: None

PATIENT
  Age: 55 Year
  Sex: Male
  Weight: 77.1115 kg

DRUGS (4)
  1. MORPHINE [Suspect]
     Indication: BACK PAIN
     Dosage: 190 MG QD/ PRN 60 QD
  2. LORAZEPAM [Suspect]
     Indication: ANXIETY
     Dosage: 2 MG TID
     Dates: start: 20051115
  3. OLANZAPINE [Concomitant]
  4. HYDROXYZINE [Concomitant]

REACTIONS (3)
  - FALL [None]
  - MIOSIS [None]
  - OVERDOSE [None]
